FAERS Safety Report 7084308-X (Version None)
Quarter: 2010Q4

REPORT INFORMATION
  Report Type: 
  Country: None (occurrence: None)
  Receive Date: 20101104
  Receipt Date: 20101026
  Transmission Date: 20110411
  Serious: Yes (Other)
  Sender: FDA-Public Use
  Company Number: JP-PFIZER INC-2010135968

PATIENT
  Age: 75 Year
  Sex: Male

DRUGS (4)
  1. LIPITOR [Suspect]
     Dosage: 10 MG, UNKNOWN/D
     Route: 048
     Dates: start: 20100601
  2. TICLOPIDINE HCL [Suspect]
     Dosage: 300 MG, UNKNOWN/D
     Route: 048
     Dates: start: 20100601
  3. 8-HOUR BAYER [Concomitant]
     Dosage: UNK
     Route: 048
     Dates: start: 20100601
  4. ARTIST [Concomitant]
     Dosage: UNK
     Route: 048
     Dates: start: 20100601

REACTIONS (1)
  - CHROMATURIA [None]
